FAERS Safety Report 6966851-4 (Version None)
Quarter: 2010Q3

REPORT INFORMATION
  Report Type: 
  Country: None (occurrence: None)
  Receive Date: 20100906
  Receipt Date: 20100825
  Transmission Date: 20110219
  Serious: Yes (Other)
  Sender: FDA-Public Use
  Company Number: PHHY2010FR56883

PATIENT
  Sex: Female

DRUGS (5)
  1. STALEVO 100 [Suspect]
     Indication: PARKINSON'S DISEASE
     Dosage: UNK
     Route: 048
  2. STALEVO 100 [Suspect]
     Dosage: 200/150/37.5 MG QID
     Route: 048
  3. REQUIP [Suspect]
     Indication: PARKINSON'S DISEASE
     Dosage: 8 MG, IN THE MORNING
  4. REQUIP [Suspect]
     Dosage: 4 MG IN THE MORNING
  5. OTRASEL [Suspect]
     Indication: PARKINSON'S DISEASE
     Dosage: 1 DF, QD

REACTIONS (2)
  - COMPULSIVE SHOPPING [None]
  - IMPULSE-CONTROL DISORDER [None]
